FAERS Safety Report 14580936 (Version 1)
Quarter: 2018Q1

REPORT INFORMATION
  Report Type: Spontaneous
  Country: US (occurrence: US)
  Receive Date: 20180228
  Receipt Date: 20180228
  Transmission Date: 20180509
  Serious: Yes (Hospitalization)
  Sender: FDA-Public Use
  Company Number: US-FRESENIUS KABI-FK201802341

PATIENT
  Age: 63 Year
  Sex: Female

DRUGS (1)
  1. CISPLATIN (MANUFACTURER UNKNOWN) [Suspect]
     Active Substance: CISPLATIN
     Indication: ENDOMETRIAL CANCER STAGE II
     Route: 065

REACTIONS (1)
  - Fanconi syndrome acquired [Recovered/Resolved]
